FAERS Safety Report 14251689 (Version 1)
Quarter: 2017Q4

REPORT INFORMATION
  Report Type: Spontaneous
  Country: US (occurrence: US)
  Receive Date: 20171205
  Receipt Date: 20171205
  Transmission Date: 20180321
  Serious: Yes (Death)
  Sender: FDA-Public Use
  Company Number: US-MISSION PHARMACAL COMPANY-2036661

PATIENT
  Age: 68 Year
  Sex: Male

DRUGS (1)
  1. THIOLA [Suspect]
     Active Substance: TIOPRONIN
     Indication: AMINO ACID CATABOLISM DISORDER
     Route: 065
     Dates: start: 20140830

REACTIONS (2)
  - Death [Fatal]
  - Myocardial infarction [Fatal]
